FAERS Safety Report 9281312 (Version 1)
Quarter: 2013Q2

REPORT INFORMATION
  Report Type: Spontaneous
  Country: IT (occurrence: None)
  Receive Date: 20130502
  Receipt Date: 20130502
  Transmission Date: 20140414
  Serious: Yes (Hospitalization)
  Sender: FDA-Public Use
  Company Number: AUR-APL-2013-03562

PATIENT
  Age: 45 Year
  Sex: Male

DRUGS (5)
  1. CEFTRIAXONE (CEFTRIAXONE) [Suspect]
     Indication: BRONCHITIS
     Route: 030
     Dates: start: 20130201, end: 20130201
  2. COTAREG (CO-DIOVAN) [Concomitant]
  3. METFORALMILLE (METFORMIN HYDROCHLORIDE) [Concomitant]
  4. AMARYL (GLIMEPIRIDE) [Concomitant]
  5. SEACOR (OMEGA-3 TRIGLYCERIDES) [Concomitant]

REACTIONS (6)
  - Abdominal pain upper [None]
  - Feeling hot [None]
  - Nausea [None]
  - Paraesthesia [None]
  - Syncope [None]
  - Throat tightness [None]
